FAERS Safety Report 11156948 (Version 1)
Quarter: 2015Q2

REPORT INFORMATION
  Report Type: Spontaneous
  Country: US (occurrence: US)
  Receive Date: 20150602
  Receipt Date: 20150602
  Transmission Date: 20150821
  Serious: No
  Sender: FDA-Public Use
  Company Number: US-ABBVIE-14P-163-1232814-00

PATIENT
  Sex: Female

DRUGS (2)
  1. MARINOL [Suspect]
     Active Substance: DRONABINOL
     Indication: PAIN
  2. MARINOL [Suspect]
     Active Substance: DRONABINOL
     Indication: OFF LABEL USE

REACTIONS (3)
  - Unevaluable event [Unknown]
  - Multiple sclerosis [Unknown]
  - Off label use [Unknown]
